FAERS Safety Report 17897455 (Version 2)
Quarter: 2020Q2

REPORT INFORMATION
  Report Type: Spontaneous
  Country: US (occurrence: US)
  Receive Date: 20200616
  Receipt Date: 20200619
  Transmission Date: 20200714
  Serious: No
  Sender: FDA-Public Use
  Company Number: US-BIOGEN-2020BI00886554

PATIENT
  Age: 51 Year
  Sex: Male

DRUGS (4)
  1. PLEGRIDY [Suspect]
     Active Substance: PEGINTERFERON BETA-1A
     Indication: MULTIPLE SCLEROSIS
     Route: 058
     Dates: start: 20080621, end: 20160101
  2. PLEGRIDY [Suspect]
     Active Substance: PEGINTERFERON BETA-1A
     Route: 065
     Dates: start: 20200606
  3. PLEGRIDY [Suspect]
     Active Substance: PEGINTERFERON BETA-1A
     Route: 065
     Dates: start: 20170112, end: 20170202
  4. PLEGRIDY [Suspect]
     Active Substance: PEGINTERFERON BETA-1A
     Route: 065
     Dates: start: 20180421

REACTIONS (6)
  - Influenza like illness [Not Recovered/Not Resolved]
  - Hemiparesis [Unknown]
  - Intentional product misuse [Unknown]
  - Gait disturbance [Unknown]
  - Muscle spasms [Unknown]
  - Muscle tightness [Unknown]

NARRATIVE: CASE EVENT DATE: 20200611
